FAERS Safety Report 8386319-0 (Version None)
Quarter: 2012Q2

REPORT INFORMATION
  Report Type: 
  Country: None (occurrence: None)
  Receive Date: 20120525
  Receipt Date: 20120224
  Transmission Date: 20120825
  Serious: No
  Sender: FDA-Public Use
  Company Number: US-VERTEX PHARMACEUTICALS INC.-AE-2012-002739

PATIENT
  Age: 39 Year
  Sex: Male
  Weight: 97.156 kg

DRUGS (10)
  1. ALLEGRA [Concomitant]
  2. SODIUM CHLORIDE CONCENTRATED INJ [Concomitant]
  3. COLSTIN [Concomitant]
  4. ZITHROMAX [Concomitant]
  5. SPIRIVA [Concomitant]
  6. CASTIN [Concomitant]
  7. KALYDECO [Suspect]
     Indication: CYSTIC FIBROSIS
     Route: 048
     Dates: start: 20120222
  8. FLONASE [Concomitant]
  9. PULMOZYME [Concomitant]
  10. SEREVENT [Concomitant]

REACTIONS (2)
  - COUGH [None]
  - SPUTUM INCREASED [None]
